FAERS Safety Report 8943626 (Version 1)
Quarter: 2012Q4

REPORT INFORMATION
  Report Type: Report from Study
  Country: CA (occurrence: CA)
  Receive Date: 20121204
  Receipt Date: 20121204
  Transmission Date: 20130627
  Serious: Yes (Death, Hospitalization)
  Sender: FDA-Public Use
  Company Number: CA-009507513-1211CAN012663

PATIENT
  Age: 61 Year
  Sex: Female
  Weight: 44.7 kg

DRUGS (12)
  1. TEMODAL [Suspect]
     Indication: GLIOBLASTOMA
     Dosage: 150 mg/m2, Unknown
     Route: 048
     Dates: start: 20091104, end: 20120217
  2. DECADRON (DEXAMETHASONE) [Suspect]
     Dosage: UNK
     Dates: start: 200910
  3. STUDY DRUG (UNSPECIFIED) [Suspect]
     Indication: GLIOBLASTOMA
     Dosage: UNK
     Route: 042
     Dates: start: 20091104, end: 20100217
  4. CARBOCAL D [Concomitant]
     Dosage: 500 mg/400 IU, Unknown
     Dates: start: 200509
  5. APO-TRIAZIDE [Concomitant]
     Dosage: 25 mg, Unknown
     Dates: start: 200405
  6. ACTONEL [Concomitant]
     Dosage: 35 mg, prn
     Dates: start: 200509
  7. DILANTIN [Concomitant]
     Dosage: 900 mg, Unknown
     Dates: start: 200910
  8. ZANTAC [Concomitant]
     Dosage: UNK
     Dates: start: 200910, end: 20091201
  9. PANTOLOC [Concomitant]
     Dosage: 80 mg, Unknown
     Dates: start: 20100217
  10. ZOFRAN [Concomitant]
     Dosage: 8 mg, Unknown
     Dates: start: 20100217
  11. METOCLOPRAMIDE [Concomitant]
     Dosage: 10 mg, Unknown
     Dates: start: 20100217
  12. DEXAMETHASONE [Concomitant]
     Dosage: 16 mg, UNK
     Dates: start: 200910

REACTIONS (1)
  - Pneumocystis jiroveci pneumonia [Fatal]
